FAERS Safety Report 7935417-1 (Version None)
Quarter: 2011Q4

REPORT INFORMATION
  Report Type: 
  Country: None (occurrence: None)
  Receive Date: 20111122
  Receipt Date: 20111116
  Transmission Date: 20120403
  Serious: Yes (Hospitalization)
  Sender: FDA-Public Use
  Company Number: DE-B.I. PHARMACEUTICALS,INC./RIDGEFIELD-2011-DE-06426DE

PATIENT
  Sex: Male
  Weight: 69 kg

DRUGS (6)
  1. PRADAXA [Suspect]
     Indication: ATRIAL FIBRILLATION
     Dosage: 220 MG
     Route: 048
     Dates: start: 20110905
  2. GLIMEPIRID 1 MG [Concomitant]
     Indication: DIABETES MELLITUS
     Dosage: 1 MG
     Route: 048
  3. OMEPRAZOL 40 [Concomitant]
     Indication: DYSPEPSIA
     Dosage: 40 UNK
     Route: 048
  4. XYS... [Concomitant]
     Indication: HYPERTENSION
     Dosage: 20 MG
     Route: 048
  5. METFORMIN 850 [Concomitant]
     Indication: DIABETES MELLITUS
     Dosage: 1700 UNK
     Route: 048
  6. RAMIPRIL [Concomitant]
     Indication: CARDIAC FAILURE
     Dosage: 5 MG
     Route: 048

REACTIONS (3)
  - CEREBROVASCULAR ACCIDENT [None]
  - VISION BLURRED [None]
  - VISUAL IMPAIRMENT [None]
